FAERS Safety Report 6284087-X (Version None)
Quarter: 2009Q3

REPORT INFORMATION
  Report Type: 
  Country: None (occurrence: None)
  Receive Date: 20090727
  Receipt Date: 20090714
  Transmission Date: 20100115
  Serious: Yes (Other)
  Sender: FDA-Public Use
  Company Number: US-ELI_LILLY_AND_COMPANY-US200907003143

PATIENT
  Sex: Male

DRUGS (25)
  1. HUMATROPE [Suspect]
     Indication: BLOOD GROWTH HORMONE DECREASED
     Dosage: UNK, UNK
     Dates: start: 20010101
  2. TESTIM [Concomitant]
  3. DESMOPRESSIN ACETATE [Concomitant]
  4. HYDROCORT [Concomitant]
  5. LEVOTHYROXINE SODIUM [Concomitant]
  6. ADVAIR HFA [Concomitant]
     Indication: ASTHMA
  7. FEXOFENADINE [Concomitant]
  8. COMBIVENT [Concomitant]
  9. SINGULAIR [Concomitant]
  10. HYZAAR [Concomitant]
  11. DILTIAZEM [Concomitant]
  12. TERAZOSIN [Concomitant]
  13. NIASPAN [Concomitant]
  14. FOLIC ACID [Concomitant]
  15. NOVOLOG [Concomitant]
     Indication: DIABETES MELLITUS
  16. LEVEMIR [Concomitant]
     Indication: DIABETES MELLITUS
  17. METFORMIN HCL [Concomitant]
  18. LYRICA [Concomitant]
     Indication: FIBROMYALGIA
  19. FLUTICASONE [Concomitant]
  20. ASPIRIN [Concomitant]
  21. CENTRUM /00554501/ [Concomitant]
  22. CHROMIUM PICOLINATE [Concomitant]
  23. POTASSIUM CHLORIDE [Concomitant]
  24. IRON [Concomitant]
  25. SAW PALMETTO [Concomitant]

REACTIONS (11)
  - ASTHENIA [None]
  - ASTHMA [None]
  - BLOOD CHOLESTEROL INCREASED [None]
  - CHRONIC FATIGUE SYNDROME [None]
  - DEPRESSION [None]
  - GENERAL PHYSICAL HEALTH DETERIORATION [None]
  - GLAUCOMA [None]
  - GRIP STRENGTH DECREASED [None]
  - MUSCULAR WEAKNESS [None]
  - PITUITARY TUMOUR [None]
  - TREMOR [None]
